FAERS Safety Report 15399877 (Version 1)
Quarter: 2018Q3

REPORT INFORMATION
  Report Type: Report from Study
  Country: None (occurrence: US)
  Receive Date: 20180919
  Receipt Date: 20180919
  Transmission Date: 20181010
  Serious: Yes (Other)
  Sender: FDA-Public Use
  Company Number: US-ABBVIE-18K-163-2483010-00

PATIENT
  Age: 57 Year
  Sex: Female

DRUGS (1)
  1. HUMIRA [Suspect]
     Active Substance: ADALIMUMAB
     Indication: COLITIS ULCERATIVE
     Route: 058

REACTIONS (5)
  - Surgical failure [Unknown]
  - Neuroma [Recovering/Resolving]
  - Procedural complication [Not Recovered/Not Resolved]
  - Tendon injury [Not Recovered/Not Resolved]
  - Foot deformity [Not Recovered/Not Resolved]

NARRATIVE: CASE EVENT DATE: 2008
